FAERS Safety Report 19056512 (Version 1)
Quarter: 2021Q1

REPORT INFORMATION
  Report Type: Spontaneous
  Country: US (occurrence: US)
  Receive Date: 20210324
  Receipt Date: 20210324
  Transmission Date: 20210420
  Serious: Yes (Life-Threatening, Hospitalization)
  Sender: FDA-Public Use
  Company Number: None

PATIENT
  Age: 83 Year
  Sex: Male
  Weight: 106 kg

DRUGS (2)
  1. ENOXAPARIN (ENOXAPARIN 120MG/0.8ML INJ, SYRINGE, 0.8ML) [Suspect]
     Active Substance: ENOXAPARIN
     Indication: MITRAL VALVE REPLACEMENT
     Route: 058
     Dates: start: 20201210, end: 20210121
  2. ENOXAPARIN (ENOXAPARIN 120MG/0.8ML INJ, SYRINGE, 0.8ML) [Suspect]
     Active Substance: ENOXAPARIN
     Indication: ATRIAL FIBRILLATION
     Route: 058
     Dates: start: 20201210, end: 20210121

REACTIONS (2)
  - Haematoma [None]
  - Haemorrhage [None]

NARRATIVE: CASE EVENT DATE: 20210224
